FAERS Safety Report 5618450-4 (Version None)
Quarter: 2008Q1

REPORT INFORMATION
  Report Type: 
  Country: None (occurrence: None)
  Receive Date: 20080204
  Receipt Date: 20080121
  Transmission Date: 20080703
  Serious: Yes (Death)
  Sender: FDA-Public Use
  Company Number: SPV1-2008-00134

PATIENT
  Age: 54 Year
  Sex: Male

DRUGS (1)
  1. CARBAMAZEPINE [Suspect]
     Dosage: ORAL
     Route: 048

REACTIONS (1)
  - THERAPEUTIC AGENT TOXICITY [None]
